FAERS Safety Report 9496417 (Version 1)
Quarter: 2013Q3

REPORT INFORMATION
  Report Type: Spontaneous
  Country: JP (occurrence: JP)
  Receive Date: 20130904
  Receipt Date: 20130904
  Transmission Date: 20140515
  Serious: Yes (Other)
  Sender: FDA-Public Use
  Company Number: PHHY2013JP088447

PATIENT
  Age: 54 Year
  Sex: Male

DRUGS (5)
  1. LAMOTRIGINE [Suspect]
     Indication: BIPOLAR I DISORDER
     Dosage: 50 MG/DAY
  2. LAMOTRIGINE [Suspect]
     Dosage: 200 MG/DAY
  3. ARIPIPRAZOLE [Concomitant]
     Indication: BIPOLAR I DISORDER
     Dosage: 6 MG/DAY
  4. LITHIUM [Concomitant]
     Indication: BIPOLAR I DISORDER
     Dosage: 400 MG/DAY
  5. SERTRALINE [Concomitant]
     Indication: DEPRESSION
     Dosage: 25 MG/DAY

REACTIONS (8)
  - Neuroleptic malignant syndrome [Recovered/Resolved]
  - Tremor [Recovered/Resolved]
  - Pyrexia [Recovered/Resolved]
  - Muscle rigidity [Recovered/Resolved]
  - Diarrhoea [Recovered/Resolved]
  - Dysphagia [Recovered/Resolved]
  - Hyperhidrosis [Recovered/Resolved]
  - Extrapyramidal disorder [Recovered/Resolved]
